FAERS Safety Report 15291234 (Version 1)
Quarter: 2018Q3

REPORT INFORMATION
  Report Type: Spontaneous
  Country: US (occurrence: US)
  Receive Date: 20180817
  Receipt Date: 20180817
  Transmission Date: 20181010
  Serious: Yes (Other)
  Sender: FDA-Public Use
  Company Number: US-DEPOMED, INC.-US-2018DEP001624

PATIENT
  Sex: Male

DRUGS (1)
  1. GRALISE [Suspect]
     Active Substance: GABAPENTIN
     Indication: BACK DISORDER
     Dosage: 1800 MG, UNK
     Route: 048

REACTIONS (2)
  - Myocardial infarction [Unknown]
  - Product use in unapproved indication [Unknown]
